FAERS Safety Report 5455683-4 (Version None)
Quarter: 2007Q3

REPORT INFORMATION
  Report Type: 
  Country: None (occurrence: None)
  Receive Date: 20070918
  Receipt Date: 20070330
  Transmission Date: 20080115
  Serious: Yes (Other)
  Sender: FDA-Public Use
  Company Number: US-ASTRAZENECA-2006UW22134

PATIENT
  Age: 12007 Day
  Sex: Male
  Weight: 90 kg

DRUGS (11)
  1. SEROQUEL [Suspect]
     Indication: SCHIZOPHRENIA
     Route: 048
     Dates: start: 19970101
  2. SEROQUEL [Suspect]
     Indication: DEPRESSION
     Route: 048
     Dates: start: 19970101
  3. SEROQUEL [Suspect]
     Dates: start: 19951028
  4. SEROQUEL [Suspect]
     Dates: start: 19951028
  5. RISPERDAL [Concomitant]
     Dates: start: 19951028
  6. TRILAFON [Concomitant]
     Dates: start: 19980619
  7. MELLARIL [Concomitant]
     Dates: start: 19960619
  8. TRAZODONE HCL [Concomitant]
     Dates: start: 19980101
  9. PROZAC [Concomitant]
     Dates: start: 19950101
  10. LORAZEPAM [Concomitant]
     Dates: start: 19960101
  11. LITHIUM GABONETE [Concomitant]
     Dates: start: 19960101

REACTIONS (4)
  - DIABETES MELLITUS [None]
  - DIABETIC KETOACIDOSIS [None]
  - KETOACIDOSIS [None]
  - TARDIVE DYSKINESIA [None]
